FAERS Safety Report 17547971 (Version 9)
Quarter: 2021Q3

REPORT INFORMATION
  Report Type: Report from Study
  Country: None (occurrence: ES)
  Receive Date: 20200316
  Receipt Date: 20210803
  Transmission Date: 20211014
  Serious: Yes (Hospitalization, Other)
  Sender: FDA-Public Use
  Company Number: ES-ABBVIE-20K-144-3302599-00

PATIENT
  Age: 73 Year
  Sex: Female
  Weight: 54 kg

DRUGS (3)
  1. DUODOPA [Suspect]
     Active Substance: CARBIDOPA\LEVODOPA
     Indication: PARKINSON^S DISEASE
     Dosage: MD: 11.5, CD: 4.9, ED: 5.5
     Route: 050
     Dates: start: 20190926, end: 202003
  2. DUODOPA [Suspect]
     Active Substance: CARBIDOPA\LEVODOPA
     Route: 050
     Dates: start: 202003, end: 20200330
  3. DUODOPA [Suspect]
     Active Substance: CARBIDOPA\LEVODOPA
     Dosage: MD: 11.5, CD: 4.9, ED: 5.5
     Route: 050
     Dates: start: 20200330

REACTIONS (19)
  - Hydrocephalus [Recovered/Resolved]
  - Obstruction gastric [Unknown]
  - Vomiting [Not Recovered/Not Resolved]
  - Pain [Not Recovered/Not Resolved]
  - Device kink [Recovered/Resolved]
  - Asthenia [Not Recovered/Not Resolved]
  - Device dislocation [Recovered/Resolved]
  - On and off phenomenon [Unknown]
  - Bezoar [Unknown]
  - Fatigue [Not Recovered/Not Resolved]
  - Urinary tract infection [Recovering/Resolving]
  - Nausea [Unknown]
  - Freezing phenomenon [Unknown]
  - Intussusception [Unknown]
  - Vomiting [Unknown]
  - Abdominal pain [Unknown]
  - Device issue [Recovered/Resolved]
  - Incorrect route of product administration [Unknown]
  - Intestinal obstruction [Unknown]

NARRATIVE: CASE EVENT DATE: 2020
